FAERS Safety Report 25013964 (Version 1)
Quarter: 2025Q1

REPORT INFORMATION
  Report Type: Spontaneous
  Country: US (occurrence: None)
  Receive Date: 20250226
  Receipt Date: 20250226
  Transmission Date: 20250409
  Serious: Yes (unspecified)
  Sender: FDA-CTU
  Company Number: None

PATIENT
  Sex: Female

DRUGS (1)
  1. RISPERIDONE [Suspect]
     Active Substance: RISPERIDONE
     Indication: Mental disorder
     Dates: start: 20240118

REACTIONS (2)
  - Blood prolactin increased [None]
  - Pituitary tumour benign [None]

NARRATIVE: CASE EVENT DATE: 20250214
